APPROVED DRUG PRODUCT: FLUOCINONIDE
Active Ingredient: FLUOCINONIDE
Strength: 0.05%
Dosage Form/Route: CREAM;TOPICAL
Application: A210554 | Product #001 | TE Code: AB1
Applicant: AMNEAL PHARMACEUTICALS LLC
Approved: Aug 21, 2018 | RLD: No | RS: Yes | Type: RX